FAERS Safety Report 17058443 (Version 1)
Quarter: 2019Q4

REPORT INFORMATION
  Report Type: Spontaneous
  Country: US (occurrence: US)
  Receive Date: 20191023
  Receipt Date: 20191023
  Transmission Date: 20200122
  Serious: No
  Sender: FDA-Public Use
  Company Number: None

PATIENT
  Sex: Female

DRUGS (8)
  1. ENTYVIO [Suspect]
     Active Substance: VEDOLIZUMAB
     Indication: CROHN^S DISEASE
     Dosage: ?          OTHER FREQUENCY:EVERY 8 WEEKS;?
     Route: 042
     Dates: start: 20190318
  2. ZANAFLEX [Concomitant]
     Active Substance: TIZANIDINE HYDROCHLORIDE
  3. OXYCODONE [Concomitant]
     Active Substance: OXYCODONE
  4. VALIUM [Concomitant]
     Active Substance: DIAZEPAM
  5. CYMBALTA [Concomitant]
     Active Substance: DULOXETINE HYDROCHLORIDE
  6. SULFASALAZINE. [Concomitant]
     Active Substance: SULFASALAZINE
  7. PROCARDIA [Concomitant]
     Active Substance: NIFEDIPINE
  8. NALOXONE [Concomitant]
     Active Substance: NALOXONE

REACTIONS (2)
  - Meningitis viral [None]
  - Therapy cessation [None]
